FAERS Safety Report 13090542 (Version 1)
Quarter: 2017Q1

REPORT INFORMATION
  Report Type: Spontaneous
  Country: US (occurrence: US)
  Receive Date: 20170105
  Receipt Date: 20170105
  Transmission Date: 20170428
  Serious: No
  Sender: FDA-Public Use
  Company Number: US-CELGENEUS-USA-2016118637

PATIENT
  Age: 62 Year
  Sex: Female

DRUGS (1)
  1. OTEZLA [Suspect]
     Active Substance: APREMILAST
     Indication: ECZEMA
     Dosage: 10,20,30MG
     Route: 048
     Dates: start: 20161121

REACTIONS (2)
  - Diarrhoea [Unknown]
  - Sinus disorder [Unknown]

NARRATIVE: CASE EVENT DATE: 20161126
